FAERS Safety Report 4918553-3 (Version None)
Quarter: 2006Q1

REPORT INFORMATION
  Report Type: 
  Country: None (occurrence: None)
  Receive Date: 20060221
  Receipt Date: 20060221
  Transmission Date: 20060701
  Serious: Yes (Hospitalization)
  Sender: FDA-Public Use
  Company Number: None

PATIENT
  Age: 53 Year
  Sex: Female
  Weight: 75.7507 kg

DRUGS (2)
  1. TRASTUZUMAB [Suspect]
     Indication: BREAST CANCER METASTATIC
     Dosage: 137.2MG QWK IV
     Route: 042
     Dates: start: 20050401, end: 20060210
  2. BEVACIZUMAB [Suspect]
     Indication: BREAST CANCER METASTATIC
     Dosage: 736MG Q2WK IV
     Route: 042
     Dates: start: 20050401, end: 20060210

REACTIONS (6)
  - ASTHENIA [None]
  - DIARRHOEA [None]
  - FALL [None]
  - GASTROENTERITIS VIRAL [None]
  - INFLUENZA [None]
  - SINUSITIS [None]
